FAERS Safety Report 23719835 (Version 2)
Quarter: 2024Q2

REPORT INFORMATION
  Report Type: Report from Study
  Country: CA (occurrence: CA)
  Receive Date: 20240408
  Receipt Date: 20240416
  Transmission Date: 20240716
  Serious: Yes (Other)
  Sender: FDA-Public Use
  Company Number: CA-SK LIFE SCIENCE, INC-SKPVG-2023-001712

PATIENT

DRUGS (10)
  1. XCOPRI [Suspect]
     Active Substance: CENOBAMATE
     Indication: Epilepsy
     Dosage: 12.5 MILLIGRAM, DAILY
     Route: 048
     Dates: start: 20240122
  2. XCOPRI [Suspect]
     Active Substance: CENOBAMATE
     Indication: Focal dyscognitive seizures
     Dosage: 25 MILLIGRAM, DAILY
     Route: 048
  3. XCOPRI [Suspect]
     Active Substance: CENOBAMATE
     Dosage: 50 MILLIGRAM, DAILY
     Route: 048
  4. XCOPRI [Suspect]
     Active Substance: CENOBAMATE
     Dosage: 75 MILLIGRAM, DAILY
     Route: 048
  5. XCOPRI [Suspect]
     Active Substance: CENOBAMATE
     Dosage: 50 MILLIGRAM, DAILY
     Route: 048
  6. XCOPRI [Suspect]
     Active Substance: CENOBAMATE
     Dosage: 25 MILLIGRAM, DAILY
     Route: 048
  7. CLOBAZAM [Concomitant]
     Active Substance: CLOBAZAM
     Indication: Product used for unknown indication
     Dosage: UNK
     Route: 065
  8. DIVALPROEX SODIUM [Concomitant]
     Active Substance: DIVALPROEX SODIUM
     Indication: Product used for unknown indication
     Dosage: UNK
     Route: 065
  9. LEVETIRACETAM [Concomitant]
     Active Substance: LEVETIRACETAM
     Indication: Product used for unknown indication
     Dosage: UNK
     Route: 065
  10. ATIVAN [Concomitant]
     Active Substance: LORAZEPAM
     Indication: Product used for unknown indication
     Dosage: UNK
     Route: 065

REACTIONS (22)
  - Pneumonia [Recovering/Resolving]
  - Atelectasis [Recovering/Resolving]
  - Off label use [Not Recovered/Not Resolved]
  - Inappropriate schedule of product administration [Not Recovered/Not Resolved]
  - Musculoskeletal stiffness [Unknown]
  - Panic reaction [Unknown]
  - Cough [Unknown]
  - Fall [Unknown]
  - Insomnia [Unknown]
  - Influenza [Unknown]
  - Nasal congestion [Recovering/Resolving]
  - Epistaxis [Recovering/Resolving]
  - Asthenia [Unknown]
  - Disturbance in attention [Unknown]
  - Dyspnoea [Not Recovered/Not Resolved]
  - Balance disorder [Unknown]
  - Disorientation [Unknown]
  - Coordination abnormal [Unknown]
  - Tremor [Unknown]
  - Gait disturbance [Unknown]
  - Nasopharyngitis [Not Recovered/Not Resolved]
  - Vomiting [Recovered/Resolved]

NARRATIVE: CASE EVENT DATE: 20240301
